FAERS Safety Report 4475355-2 (Version None)
Quarter: 2004Q4

REPORT INFORMATION
  Report Type: 
  Country: None (occurrence: None)
  Receive Date: 20041014
  Receipt Date: 20041014
  Transmission Date: 20050328
  Serious: Yes (Other)
  Sender: FDA-Public Use
  Company Number: None

PATIENT
  Age: 20 Year
  Sex: Male

DRUGS (4)
  1. LEVAQUIN [Suspect]
     Indication: PHARYNGITIS
     Dosage: 500 MG QD
     Dates: start: 20041006, end: 20041009
  2. LEVAQUIN [Suspect]
     Indication: SINUSITIS
     Dosage: 500 MG QD
     Dates: start: 20041006, end: 20041009
  3. FLONASE [Concomitant]
  4. MEDROL [Concomitant]

REACTIONS (2)
  - ABASIA [None]
  - PAIN IN EXTREMITY [None]
